FAERS Safety Report 6971695-3 (Version None)
Quarter: 2010Q3

REPORT INFORMATION
  Report Type: 
  Country: None (occurrence: None)
  Receive Date: 20100908
  Receipt Date: 20100727
  Transmission Date: 20110219
  Serious: No
  Sender: FDA-Public Use
  Company Number: US-PFIZER INC-2010075608

PATIENT
  Age: 55 Year
  Sex: Female

DRUGS (1)
  1. NARDIL [Suspect]
     Dosage: UNK
     Route: 048

REACTIONS (3)
  - ANXIETY [None]
  - CHEST DISCOMFORT [None]
  - DRUG INEFFECTIVE [None]
